FAERS Safety Report 5878284-2 (Version None)
Quarter: 2008Q3

REPORT INFORMATION
  Report Type: 
  Country: None (occurrence: None)
  Receive Date: 20080911
  Receipt Date: 20080908
  Transmission Date: 20090109
  Serious: Yes (Hospitalization)
  Sender: FDA-Public Use
  Company Number: DE-WYE-G02123008

PATIENT
  Sex: Female
  Weight: 60 kg

DRUGS (7)
  1. LORAZEPAM [Suspect]
     Dosage: MAX. 20 TABLETS (OVERDOSE AMOUNT MAX. 20 MG)
     Route: 048
     Dates: start: 20080905, end: 20080905
  2. EDRONAX [Suspect]
     Dosage: OVERDOSE AMOUNT MAX. 1 PACKAGE
     Route: 048
     Dates: start: 20080905, end: 20080905
  3. VALORON [Suspect]
     Dosage: OVERDOSE AMOUNT 5 TO 6 TABLETS
     Route: 048
     Dates: start: 20080905, end: 20080905
  4. ACETAMINOPHEN [Suspect]
     Dosage: 4 TABLETS (OVERDOSE AMOUNT 2000 MG)
     Route: 048
     Dates: start: 20080905, end: 20080905
  5. RITALIN [Suspect]
     Dosage: OVERDOSE AMOUNT 4 TABLETS
     Route: 048
     Dates: start: 20080905, end: 20080905
  6. CITALOPRAM HYDROBROMIDE [Suspect]
     Dosage: 10 TABLETS (OVERDOSE AMOUNT 200 MG)
     Route: 048
     Dates: start: 20080905, end: 20080905
  7. SPALT LIQUA [Suspect]
     Dosage: 3 CAPSULES (OVERDOSE AMOUNT 1200 MG)
     Route: 048
     Dates: start: 20080905, end: 20080905

REACTIONS (3)
  - NYSTAGMUS [None]
  - OVERDOSE [None]
  - SOMNOLENCE [None]
